FAERS Safety Report 24533161 (Version 5)
Quarter: 2025Q2

REPORT INFORMATION
  Report Type: Report from Study
  Country: US (occurrence: US)
  Receive Date: 20241022
  Receipt Date: 20250401
  Transmission Date: 20250716
  Serious: Yes (Hospitalization, Other)
  Sender: UCB
  Company Number: US-UCBSA-2024051673

PATIENT
  Age: 4 Year
  Sex: Male
  Weight: 23.6 kg

DRUGS (16)
  1. FINTEPLA [Suspect]
     Active Substance: FENFLURAMINE
     Indication: Lennox-Gastaut syndrome
     Dosage: 2.1 MILLILITER, 2X/DAY (BID)
     Dates: start: 20220121
  2. FINTEPLA [Suspect]
     Active Substance: FENFLURAMINE
     Dosage: 2.1 MILLILITER, 2X/DAY (BID)
  3. FINTEPLA [Suspect]
     Active Substance: FENFLURAMINE
  4. EPIDIOLEX [Concomitant]
     Active Substance: CANNABIDIOL
     Indication: Seizure
  5. FAMOTIDINE [Concomitant]
     Active Substance: FAMOTIDINE
     Indication: Dyspepsia
  6. LEVOCARNITINE [Concomitant]
     Active Substance: LEVOCARNITINE
     Indication: Renal impairment
  7. VALPROIC ACID [Concomitant]
     Active Substance: VALPROIC ACID
     Indication: Seizure
  8. ONFI [Concomitant]
     Active Substance: CLOBAZAM
     Indication: Seizure
  9. ALLEGRA [BILASTINE] [Concomitant]
     Indication: Seasonal allergy
  10. FYCOMPA [Concomitant]
     Active Substance: PERAMPANEL
     Indication: Seizure
  11. MONTELUKAST [Concomitant]
     Active Substance: MONTELUKAST
     Indication: Seasonal allergy
  12. LAMOTRIGINE [Concomitant]
     Active Substance: LAMOTRIGINE
     Indication: Seizure
  13. ALBUTEROL SULFATE [Concomitant]
     Active Substance: ALBUTEROL SULFATE
     Indication: Cough
  14. ALBUTEROL SULFATE [Concomitant]
     Active Substance: ALBUTEROL SULFATE
     Indication: Dyspnoea
  15. BUDESONIDE [Concomitant]
     Active Substance: BUDESONIDE
     Indication: Cough
  16. BUDESONIDE [Concomitant]
     Active Substance: BUDESONIDE
     Indication: Dyspnoea

REACTIONS (4)
  - Pneumonitis [Recovered/Resolved]
  - Illness [Recovered/Resolved]
  - Rhinovirus infection [Not Recovered/Not Resolved]
  - Tricuspid valve incompetence [Not Recovered/Not Resolved]

NARRATIVE: CASE EVENT DATE: 20241010
